FAERS Safety Report 16838971 (Version 6)
Quarter: 2020Q3

REPORT INFORMATION
  Report Type: Spontaneous
  Country: PT (occurrence: PT)
  Receive Date: 20190923
  Receipt Date: 20200716
  Transmission Date: 20201102
  Serious: Yes (Life-Threatening, Hospitalization, Other)
  Sender: FDA-Public Use
  Company Number: PT-VALIDUS PHARMACEUTICALS LLC-PT-2019VAL000526

PATIENT

DRUGS (13)
  1. METFORMIN HYDROCHLORIDE. [Suspect]
     Active Substance: METFORMIN HYDROCHLORIDE
     Indication: WEIGHT CONTROL
     Dosage: 230 MG, BID, CAPSULE
     Route: 048
     Dates: start: 201706, end: 201807
  2. TOPIRAMATE. [Suspect]
     Active Substance: TOPIRAMATE
     Indication: WEIGHT CONTROL
     Dosage: 35 MG, BID, CAPSULE
     Route: 048
     Dates: start: 201706, end: 201807
  3. ORANGE. [Suspect]
     Active Substance: ORANGE
     Indication: WEIGHT DECREASED
     Dosage: 200 MG, BID
     Route: 048
     Dates: start: 201706, end: 201807
  4. FUROSEMIDE. [Suspect]
     Active Substance: FUROSEMIDE
     Indication: WEIGHT CONTROL
     Dosage: 30 MG, BID CAPSULE
     Route: 048
     Dates: start: 201706, end: 201807
  5. CHLORDIAZEPOXIDE. [Suspect]
     Active Substance: CHLORDIAZEPOXIDE
     Indication: WEIGHT CONTROL
     Dosage: 10 MG, BID COMPOUNDED PREPARATION, CAPSULE
     Route: 048
     Dates: start: 201706, end: 201807
  6. BUPROPION HYDROCHLORIDE. [Suspect]
     Active Substance: BUPROPION HYDROCHLORIDE
     Indication: WEIGHT CONTROL
     Dosage: 60 MG, BID COMPOUNDED PREPARATION, CAPSULE
     Route: 048
     Dates: start: 201706, end: 201807
  7. RHAMNUS PURSHIANA [Suspect]
     Active Substance: FRANGULA PURSHIANA BARK
     Indication: WEIGHT CONTROL
     Dosage: 60 MG, BID
     Route: 048
     Dates: start: 201706, end: 201807
  8. TRI?GYNERA [Suspect]
     Active Substance: ETHINYL ESTRADIOL\GESTODENE
     Indication: CONTRACEPTION
     Dosage: 1 DF, QD COMPOUNDED PREPARATION
     Route: 048
     Dates: start: 2002, end: 201807
  9. ETHINYLESTRADIOL W/GESTODENE [Suspect]
     Active Substance: ETHINYL ESTRADIOL\GESTODENE
     Indication: WEIGHT DECREASED
     Dosage: ETHINYLESTRADIOL 0.03 MG AND GESTODENE 0.075 MG PAST 16 YEARS COMPOUNDED PREPARATION
     Route: 048
  10. CASCARA [Suspect]
     Active Substance: RHAMNUS PURSHIANA BARK EXTRACT
     Indication: WEIGHT DECREASED
     Dosage: 60 MG, BID
     Route: 048
     Dates: start: 201706
  11. HOODIA GORDONII [Suspect]
     Active Substance: DIETARY SUPPLEMENT
     Indication: WEIGHT CONTROL
     Dosage: 70 MG, BID COMPOUNDED PREPARATION
     Route: 048
     Dates: start: 201706, end: 201807
  12. ETHINYLESTRADIOL W/GESTODENE [Suspect]
     Active Substance: ETHINYL ESTRADIOL\GESTODENE
     Dosage: CONTINUE: OFF LABEL USE, MEDICATION ERROR;
     Route: 048
  13. LEVOTHYROXINE SODIUM. [Concomitant]
     Active Substance: LEVOTHYROXINE SODIUM
     Indication: PRODUCT USED FOR UNKNOWN INDICATION
     Dosage: UNK
     Dates: start: 2014

REACTIONS (6)
  - Drug interaction [Recovered/Resolved]
  - Neurological symptom [Unknown]
  - Headache [Recovering/Resolving]
  - Cerebral venous thrombosis [Recovered/Resolved]
  - Product use in unapproved indication [Recovered/Resolved]
  - Intentional product misuse [Recovered/Resolved]

NARRATIVE: CASE EVENT DATE: 20180619
